FAERS Safety Report 25372579 (Version 3)
Quarter: 2025Q3

REPORT INFORMATION
  Report Type: Spontaneous
  Country: US (occurrence: US)
  Receive Date: 20250529
  Receipt Date: 20250918
  Transmission Date: 20251021
  Serious: No
  Sender: KARYOPHARM THERAPEUTICS
  Company Number: US-KARYOPHARM-2025KPT100319

PATIENT

DRUGS (6)
  1. SELINEXOR [Suspect]
     Active Substance: SELINEXOR
     Indication: Diffuse large B-cell lymphoma
     Route: 048
     Dates: end: 2025
  2. SELINEXOR [Suspect]
     Active Substance: SELINEXOR
     Route: 048
     Dates: start: 2025
  3. ALLOPURINOL [Concomitant]
     Active Substance: ALLOPURINOL
  4. AMLODIPINE BESYLATE [Concomitant]
     Active Substance: AMLODIPINE BESYLATE
  5. LOSARTAN [Concomitant]
     Active Substance: LOSARTAN
  6. OLANZAPINE [Concomitant]
     Active Substance: OLANZAPINE

REACTIONS (3)
  - Abdominal discomfort [Recovering/Resolving]
  - Nausea [Recovering/Resolving]
  - Fatigue [Not Recovered/Not Resolved]
